FAERS Safety Report 7001141-5 (Version None)
Quarter: 2010Q3

REPORT INFORMATION
  Report Type: 
  Country: None (occurrence: None)
  Receive Date: 20100920
  Receipt Date: 20100910
  Transmission Date: 20110219
  Serious: Yes (Death)
  Sender: FDA-Public Use
  Company Number: TH-ROCHE-700485

PATIENT
  Age: 5 Year
  Sex: Male

DRUGS (1)
  1. OSELTAMIVIR [Suspect]
     Indication: INFLUENZA
     Route: 065
     Dates: start: 20051207, end: 20051207

REACTIONS (1)
  - DEATH [None]
